FAERS Safety Report 5508788-3 (Version None)
Quarter: 2007Q4

REPORT INFORMATION
  Report Type: 
  Country: None (occurrence: None)
  Receive Date: 20071107
  Receipt Date: 20071029
  Transmission Date: 20080405
  Serious: Yes (Life-Threatening, Hospitalization)
  Sender: FDA-Public Use
  Company Number: B0494172A

PATIENT
  Age: 27 Year
  Sex: Male

DRUGS (5)
  1. AUGMENTIN '125' [Suspect]
     Indication: DRUG USE FOR UNKNOWN INDICATION
     Route: 042
     Dates: start: 20070726, end: 20070726
  2. ULTIVA [Concomitant]
     Route: 042
     Dates: start: 20070726, end: 20070726
  3. SEVORANE [Concomitant]
     Route: 065
     Dates: start: 20070726
  4. VOLUVEN [Concomitant]
     Route: 065
     Dates: start: 20070726
  5. ATARAX [Concomitant]
     Indication: PREMEDICATION
     Route: 065
     Dates: start: 20070726

REACTIONS (9)
  - ANAPHYLACTIC REACTION [None]
  - BURNING SENSATION [None]
  - CHEST DISCOMFORT [None]
  - GENERALISED OEDEMA [None]
  - NAUSEA [None]
  - OXYGEN SATURATION DECREASED [None]
  - PARAESTHESIA [None]
  - RASH [None]
  - VOMITING [None]
